FAERS Safety Report 14973024 (Version 1)
Quarter: 2018Q2

REPORT INFORMATION
  Report Type: Report from Study
  Country: IL (occurrence: IL)
  Receive Date: 20180605
  Receipt Date: 20180605
  Transmission Date: 20180711
  Serious: Yes (Other)
  Sender: FDA-Public Use
  Company Number: IL-BAYER-2018-056751

PATIENT
  Age: 23 Year
  Sex: Female

DRUGS (1)
  1. JANESS [Suspect]
     Active Substance: LEVONORGESTREL
     Dosage: 14 MCG/24HR, CONT
     Route: 015
     Dates: start: 20170519, end: 20180309

REACTIONS (6)
  - Post procedural haemorrhage [Recovered/Resolved]
  - Vulvovaginal erythema [Recovered/Resolved]
  - Pregnancy with contraceptive device [Not Recovered/Not Resolved]
  - Pruritus [None]
  - Burning sensation [None]
  - Drug ineffective [None]

NARRATIVE: CASE EVENT DATE: 20170519
